FAERS Safety Report 17651864 (Version 3)
Quarter: 2020Q2

REPORT INFORMATION
  Report Type: Report from Study
  Country: US (occurrence: US)
  Receive Date: 20200409
  Receipt Date: 20200518
  Transmission Date: 20200713
  Serious: Yes (Hospitalization, Other)
  Sender: FDA-Public Use
  Company Number: NVSC2020US095266

PATIENT
  Sex: Female

DRUGS (1)
  1. COSENTYX [Suspect]
     Active Substance: SECUKINUMAB
     Indication: PSORIATIC ARTHROPATHY
     Dosage: UNK, ONCE WEEKLY FOR 5 WEEKS (LOADING),THEN ONCE EVERY 4 WEEKS (MAINTENANCE)
     Route: 058
     Dates: start: 20200213

REACTIONS (9)
  - Injection site discomfort [Unknown]
  - Inflammatory bowel disease [Recovering/Resolving]
  - Wrong technique in product usage process [Unknown]
  - Infection [Recovering/Resolving]
  - Incorrect dose administered [Unknown]
  - Clostridium difficile infection [Recovering/Resolving]
  - Eye disorder [Recovering/Resolving]
  - Wrong technique in device usage process [Unknown]
  - Colitis ulcerative [Recovering/Resolving]
